FAERS Safety Report 21997833 (Version 5)
Quarter: 2023Q2

REPORT INFORMATION
  Report Type: Report from Study
  Country: US (occurrence: None)
  Receive Date: 20230216
  Receipt Date: 20230418
  Transmission Date: 20230722
  Serious: Yes (Other)
  Sender: FDA-Public Use
  Company Number: US-Merck Healthcare KGaA-9369138

PATIENT
  Age: 67 Year
  Sex: Female

DRUGS (13)
  1. REBIF [Suspect]
     Active Substance: INTERFERON BETA-1A
     Indication: Multiple sclerosis
     Route: 058
     Dates: start: 20211021
  2. REBIF [Suspect]
     Active Substance: INTERFERON BETA-1A
     Route: 058
     Dates: start: 20221021, end: 20221118
  3. REBIF [Suspect]
     Active Substance: INTERFERON BETA-1A
     Dosage: REBIF PREFILLED SYRINGE
     Route: 058
     Dates: start: 20221130, end: 20230215
  4. LEXAPRO [Concomitant]
     Active Substance: ESCITALOPRAM OXALATE
     Indication: Product used for unknown indication
  5. LEVOTHYROXINE [Concomitant]
     Active Substance: LEVOTHYROXINE
     Indication: Product used for unknown indication
  6. GLIMEPIRIDE [Concomitant]
     Active Substance: GLIMEPIRIDE
     Indication: Product used for unknown indication
  7. PRILOSEC [Concomitant]
     Active Substance: OMEPRAZOLE MAGNESIUM
     Indication: Product used for unknown indication
     Dosage: PPRILOSEC OTC (OVER THE COUNTER) 20 MG TABLET DR
  8. ERGOCALCIFEROL [Concomitant]
     Active Substance: ERGOCALCIFEROL
     Indication: Product used for unknown indication
     Dosage: VITAMIN D-400 (UNSPECIFIED UNIT)
  9. FEXOFENADINE;PSEUDOEPHEDRINE [Concomitant]
     Indication: Product used for unknown indication
     Dosage: ER (EXTENDED RELEASE)
  10. CYCLOBENZAPRINE HYDROCHLORIDE [Concomitant]
     Active Substance: CYCLOBENZAPRINE HYDROCHLORIDE
     Indication: Product used for unknown indication
  11. ZETIA [Concomitant]
     Active Substance: EZETIMIBE
     Indication: Product used for unknown indication
  12. LISINOPRIL [Concomitant]
     Active Substance: LISINOPRIL
     Indication: Product used for unknown indication
  13. PREGABALIN [Concomitant]
     Active Substance: PREGABALIN
     Indication: Product used for unknown indication

REACTIONS (29)
  - Glaucoma [Unknown]
  - Feeling of body temperature change [Unknown]
  - Headache [Unknown]
  - Fatigue [Unknown]
  - Depression [Unknown]
  - Hyperhidrosis [Unknown]
  - Anaemia [Unknown]
  - Arthralgia [Unknown]
  - Cataract [Unknown]
  - Pain in extremity [Unknown]
  - Eye disorder [Unknown]
  - Nasopharyngitis [Unknown]
  - Dizziness [Unknown]
  - Balance disorder [Unknown]
  - Muscle spasms [Unknown]
  - Trigeminal neuralgia [Unknown]
  - Gait disturbance [Unknown]
  - Pollakiuria [Unknown]
  - Urinary retention [Unknown]
  - Eye irritation [Unknown]
  - Eye pain [Not Recovered/Not Resolved]
  - Dry eye [Unknown]
  - Eyelid ptosis [Unknown]
  - Asthenia [Unknown]
  - Memory impairment [Unknown]
  - Drug ineffective [Unknown]
  - Product availability issue [Recovered/Resolved]
  - Circumstance or information capable of leading to medication error [Unknown]
  - Product dose omission issue [Unknown]

NARRATIVE: CASE EVENT DATE: 20230101
